FAERS Safety Report 4831992-4 (Version None)
Quarter: 2005Q4

REPORT INFORMATION
  Report Type: 
  Country: None (occurrence: None)
  Receive Date: 20051116
  Receipt Date: 20050927
  Transmission Date: 20060501
  Serious: No
  Sender: FDA-Public Use
  Company Number: 230157K05BRA

PATIENT
  Sex: Female

DRUGS (4)
  1. REBIF [Suspect]
     Dosage: 22 MCG, 3 IN 1 WEEKS; 44 MCG, 3 IN 1 WEEKS
     Dates: start: 20021217, end: 20031112
  2. REBIF [Suspect]
     Dosage: 22 MCG, 3 IN 1 WEEKS; 44 MCG, 3 IN 1 WEEKS
     Dates: start: 20031112
  3. ACETAMINOPHEN [Concomitant]
  4. AMITRIPTYLINE HCL [Concomitant]

REACTIONS (2)
  - CONVULSION [None]
  - PYREXIA [None]
